FAERS Safety Report 12854094 (Version 13)
Quarter: 2017Q2

REPORT INFORMATION
  Report Type: Spontaneous
  Country: US (occurrence: US)
  Receive Date: 20161017
  Receipt Date: 20170623
  Transmission Date: 20170830
  Serious: Yes (Hospitalization, Other)
  Sender: FDA-Public Use
  Company Number: US-PFIZER INC-2016481829

PATIENT
  Age: 61 Year
  Sex: Female
  Weight: 80 kg

DRUGS (9)
  1. IBRANCE [Suspect]
     Active Substance: PALBOCICLIB
     Dosage: 100 MG, CYCLIC (1-2/DAYS EVERY 28/DAYS)
     Route: 048
     Dates: start: 20160928
  2. IBRANCE [Suspect]
     Active Substance: PALBOCICLIB
     Dosage: 100 MG, DAILY (1 CAPSULE DAILY 1-21/DAYS)
     Route: 048
     Dates: start: 20160928
  3. IBRANCE [Suspect]
     Active Substance: PALBOCICLIB
     Indication: BREAST CANCER
     Dosage: 100 MG, DAILY (21/DAYS)
     Route: 048
     Dates: start: 20161005
  4. IBRANCE [Suspect]
     Active Substance: PALBOCICLIB
     Dosage: 100 MG, CYCLIC (1-21 DAYS, EVERY 28 DAYS)
     Route: 048
     Dates: start: 20160928
  5. IBRANCE [Suspect]
     Active Substance: PALBOCICLIB
     Dosage: 100 MG, DAILY (FOR 21/DAYS)
     Route: 048
     Dates: start: 20161006
  6. IBRANCE [Suspect]
     Active Substance: PALBOCICLIB
     Dosage: 100 MG, UNK
     Dates: start: 20161101
  7. IBRANCE [Suspect]
     Active Substance: PALBOCICLIB
     Dosage: 100 MG, CYCLIC (DAILY DAYS 1-21 Q 28 DAYS)
     Route: 048
     Dates: start: 201609, end: 201706
  8. IBRANCE [Suspect]
     Active Substance: PALBOCICLIB
     Dosage: 125 MG, CYCLIC, (D1-D21 Q 28D)/(1 CAP/DAILY FOR 21 DAYS)
     Route: 048
     Dates: start: 20161006
  9. IBRANCE [Suspect]
     Active Substance: PALBOCICLIB
     Dosage: 100MG CYCLIC (DAILY,21 DAYS, 7 DAYS OFF)
     Route: 048
     Dates: start: 20161122, end: 20170515

REACTIONS (14)
  - Influenza [Unknown]
  - Neoplasm progression [Unknown]
  - Viral upper respiratory tract infection [Unknown]
  - Dizziness [Recovered/Resolved]
  - Nerve compression [Unknown]
  - Seizure [Unknown]
  - Hypoaesthesia [Recovered/Resolved]
  - Hypotension [Recovered/Resolved]
  - Nervous system disorder [Unknown]
  - Lower limb fracture [Unknown]
  - Muscle spasms [Unknown]
  - White blood cell count decreased [Unknown]
  - Muscle spasms [Not Recovered/Not Resolved]
  - Paraesthesia [Unknown]

NARRATIVE: CASE EVENT DATE: 20161009
